FAERS Safety Report 20602768 (Version 1)
Quarter: 2022Q1

REPORT INFORMATION
  Report Type: Spontaneous
  Country: US (occurrence: US)
  Receive Date: 20220316
  Receipt Date: 20220316
  Transmission Date: 20220424
  Serious: No
  Sender: FDA-Public Use
  Company Number: US-PFIZER INC-202100999355

PATIENT
  Age: 67 Year
  Sex: Female

DRUGS (1)
  1. IBRANCE [Suspect]
     Active Substance: PALBOCICLIB
     Dosage: 100 MG, DAILY (TABLET 1 DAILY FOR 21 DAYS, 7 OFF)
     Dates: start: 20201202

REACTIONS (2)
  - Nausea [Unknown]
  - Hyperhidrosis [Unknown]
